FAERS Safety Report 6845736-8 (Version None)
Quarter: 2010Q3

REPORT INFORMATION
  Report Type: 
  Country: None (occurrence: None)
  Receive Date: 20100715
  Receipt Date: 20071116
  Transmission Date: 20110219
  Serious: Yes (Other)
  Sender: FDA-Public Use
  Company Number: US-PFIZER INC-2007070295

PATIENT
  Sex: Male
  Weight: 81.6 kg

DRUGS (3)
  1. CHANTIX [Suspect]
     Indication: SMOKING CESSATION THERAPY
     Dates: start: 20070815
  2. GOODYS POWDERS [Concomitant]
     Indication: HEADACHE
     Dosage: ONCE IN A WHILE
  3. ANTIBIOTICS [Concomitant]
     Indication: LOWER RESPIRATORY TRACT INFECTION
     Dates: start: 20070801, end: 20070801

REACTIONS (2)
  - EUPHORIC MOOD [None]
  - OROPHARYNGEAL PAIN [None]
